FAERS Safety Report 10235052 (Version 2)
Quarter: 2014Q3

REPORT INFORMATION
  Report Type: Spontaneous
  Country: US (occurrence: None)
  Receive Date: 20140611
  Receipt Date: 20140703
  Transmission Date: 20150326
  Serious: Yes (Hospitalization)
  Sender: FDA-Public Use
  Company Number: US-001045

PATIENT
  Age: 57 Year
  Sex: Male

DRUGS (29)
  1. NICOTINE. [Concomitant]
     Active Substance: NICOTINE
  2. NORVASC [Concomitant]
     Active Substance: AMLODIPINE BESYLATE
  3. HEPARIN [Concomitant]
     Active Substance: HEPARIN SODIUM
  4. XANAX [Concomitant]
     Active Substance: ALPRAZOLAM
  5. VISTARIL [Concomitant]
     Active Substance: HYDROXYZINE PAMOATE
  6. LIDOCAINE. [Concomitant]
     Active Substance: LIDOCAINE
  7. MSIR [Concomitant]
     Active Substance: MORPHINE SULFATE
  8. CHOLECALCIFEROL [Concomitant]
     Active Substance: CHOLECALCIFEROL
  9. PROSCAR [Concomitant]
     Active Substance: FINASTERIDE
  10. SODIUM CHLORIDE. [Concomitant]
     Active Substance: SODIUM CHLORIDE
  11. DEXTROSE W/POTASSIUM CHLORIDE [Concomitant]
  12. SOLUTIONS FORPARENTERAL NUTRITION [Concomitant]
  13. LOMOTIL [Concomitant]
     Active Substance: ATROPINE SULFATE\DIPHENOXYLATE HYDROCHLORIDE
  14. ZOFRAN [Concomitant]
     Active Substance: ONDANSETRON HYDROCHLORIDE
  15. GATTEX [Suspect]
     Active Substance: TEDUGLUTIDE\WATER
     Indication: SHORT-BOWEL SYNDROME
     Dosage: DF SUBCUTANEOUS
     Dates: start: 20140509, end: 20140525
  16. HYDROMORPHONE [Concomitant]
     Active Substance: HYDROMORPHONE
  17. PROTONIX [Concomitant]
     Active Substance: PANTOPRAZOLE SODIUM
  18. DUONEB [Concomitant]
     Active Substance: ALBUTEROL SULFATE\IPRATROPIUM BROMIDE
  19. ALLOPURINOL. [Concomitant]
     Active Substance: ALLOPURINOL
  20. TENORMIN [Concomitant]
     Active Substance: ATENOLOL
  21. BACTRIM DS [Concomitant]
     Active Substance: SULFAMETHOXAZOLE\TRIMETHOPRIM
  22. FLOMAX [Concomitant]
     Active Substance: TAMSULOSIN HYDROCHLORIDE
  23. ACETAMINOPHEN. [Concomitant]
     Active Substance: ACETAMINOPHEN
  24. CATHFLO [Concomitant]
  25. COLCRYS [Concomitant]
     Active Substance: COLCHICINE
  26. EFFEXOR [Suspect]
     Active Substance: VENLAFAXINE HYDROCHLORIDE
     Indication: PRODUCT USED FOR UNKNOWN INDICATION
     Route: 048
  27. MS CONTIN [Concomitant]
     Active Substance: MORPHINE SULFATE
  28. TRAZODONE [Concomitant]
     Active Substance: TRAZODONE HYDROCHLORIDE
  29. VANCOMYCIN [Concomitant]
     Active Substance: VANCOMYCIN

REACTIONS (5)
  - Serotonin syndrome [None]
  - Device related infection [None]
  - Mental status changes [None]
  - Agitation [None]
  - Overdose [None]

NARRATIVE: CASE EVENT DATE: 201405
